FAERS Safety Report 17460342 (Version 3)
Quarter: 2020Q4

REPORT INFORMATION
  Report Type: Spontaneous
  Country: US (occurrence: US)
  Receive Date: 20200226
  Receipt Date: 20201221
  Transmission Date: 20210113
  Serious: Yes (Hospitalization, Other)
  Sender: FDA-Public Use
  Company Number: US-PFIZER INC-2019207320

PATIENT
  Age: 62 Year
  Sex: Female
  Weight: 81 kg

DRUGS (5)
  1. TRAMADOL. [Concomitant]
     Active Substance: TRAMADOL
     Dosage: UNK, 1X/DAY
  2. OXYCODONE [Concomitant]
     Active Substance: OXYCODONE
     Dosage: UNK
  3. XELJANZ XR [Suspect]
     Active Substance: TOFACITINIB CITRATE
     Indication: RHEUMATOID ARTHRITIS
     Dosage: 11 MG, 1X/DAY
     Dates: start: 201903
  4. PREDNISONE. [Concomitant]
     Active Substance: PREDNISONE
     Dosage: UNK
  5. HYDROCODONE [Concomitant]
     Active Substance: HYDROCODONE
     Dosage: UNK

REACTIONS (11)
  - Back disorder [Unknown]
  - Movement disorder [Not Recovered/Not Resolved]
  - Malaise [Unknown]
  - Body height decreased [Unknown]
  - Haemorrhoids [Unknown]
  - Illness [Unknown]
  - Back pain [Unknown]
  - Nausea [Unknown]
  - Rectal haemorrhage [Unknown]
  - Constipation [Unknown]
  - Pain [Unknown]
